FAERS Safety Report 6823413-7 (Version None)
Quarter: 2010Q3

REPORT INFORMATION
  Report Type: 
  Country: None (occurrence: None)
  Receive Date: 20100708
  Receipt Date: 20100629
  Transmission Date: 20110219
  Serious: Yes (Other)
  Sender: FDA-Public Use
  Company Number: US-PFIZER INC-2010081603

PATIENT
  Age: 73 Year
  Sex: Male
  Weight: 81.633 kg

DRUGS (3)
  1. LIPITOR [Suspect]
     Indication: BLOOD CHOLESTEROL INCREASED
     Dosage: UNK
     Route: 048
     Dates: start: 20091001, end: 20100301
  2. CRESTOR [Suspect]
     Indication: BLOOD CHOLESTEROL INCREASED
     Dosage: UNK
     Route: 048
     Dates: start: 20100101, end: 20100601
  3. INSULIN [Concomitant]

REACTIONS (3)
  - FEELING HOT [None]
  - PAIN IN EXTREMITY [None]
  - PARAESTHESIA [None]
